FAERS Safety Report 13962517 (Version 1)
Quarter: 2017Q3

REPORT INFORMATION
  Report Type: Spontaneous
  Country: DE (occurrence: DE)
  Receive Date: 20170913
  Receipt Date: 20170913
  Transmission Date: 20171128
  Serious: Yes (Other)
  Sender: FDA-Public Use
  Company Number: DE-ROCHE-1991389

PATIENT
  Age: 41 Year
  Sex: Male

DRUGS (2)
  1. VENETOCLAX. [Suspect]
     Active Substance: VENETOCLAX
     Indication: B-CELL PROLYMPHOCYTIC LEUKAEMIA
     Route: 048
     Dates: start: 20170311, end: 20170421
  2. MABTHERA [Suspect]
     Active Substance: RITUXIMAB
     Indication: B-CELL PROLYMPHOCYTIC LEUKAEMIA
     Route: 065
     Dates: start: 20170401, end: 20170421

REACTIONS (4)
  - Agranulocytosis [Unknown]
  - Intentional product use issue [Unknown]
  - Off label use [Unknown]
  - Tumour lysis syndrome [Unknown]

NARRATIVE: CASE EVENT DATE: 20170311
